FAERS Safety Report 21464649 (Version 2)
Quarter: 2022Q4

REPORT INFORMATION
  Report Type: Spontaneous
  Country: US (occurrence: US)
  Receive Date: 20221017
  Receipt Date: 20221027
  Transmission Date: 20230113
  Serious: No
  Sender: FDA-Public Use
  Company Number: US-GLAXOSMITHKLINE-US2022AMR147344

PATIENT

DRUGS (2)
  1. ZEJULA [Suspect]
     Active Substance: NIRAPARIB
     Indication: Product used for unknown indication
     Dosage: 200 MG, QD
     Dates: start: 20220908, end: 20221004
  2. ZEJULA [Suspect]
     Active Substance: NIRAPARIB
     Dosage: 100 MG, QD
     Dates: start: 20221012

REACTIONS (4)
  - Platelet count decreased [Recovered/Resolved]
  - Heart rate increased [Not Recovered/Not Resolved]
  - Blood pressure increased [Unknown]
  - Drug monitoring procedure not performed [Unknown]
